FAERS Safety Report 9639416 (Version 2)
Quarter: 2013Q4

REPORT INFORMATION
  Report Type: Report from Study
  Country: PA (occurrence: PA)
  Receive Date: 20131022
  Receipt Date: 20131206
  Transmission Date: 20140711
  Serious: Yes (Hospitalization, Other)
  Sender: FDA-Public Use
  Company Number: PA-ROCHE-1290748

PATIENT
  Age: 79 Year
  Sex: Female

DRUGS (3)
  1. BONVIVA [Suspect]
     Indication: OSTEOPOROSIS
     Route: 048
     Dates: start: 20091118
  2. AMLODIPINE [Concomitant]
     Indication: HYPERTENSION
  3. APROVEL [Concomitant]
     Indication: HYPERTENSION

REACTIONS (5)
  - Tibia fracture [Recovered/Resolved]
  - Fibula fracture [Recovered/Resolved]
  - Blood pressure inadequately controlled [Recovering/Resolving]
  - Fall [Unknown]
  - Ecchymosis [Not Recovered/Not Resolved]
